FAERS Safety Report 7558088-5 (Version None)
Quarter: 2011Q2

REPORT INFORMATION
  Report Type: 
  Country: None (occurrence: None)
  Receive Date: 20110620
  Receipt Date: 20110610
  Transmission Date: 20111010
  Serious: Yes (Hospitalization)
  Sender: FDA-Public Use
  Company Number: GB-ASTRAZENECA-2011SE33934

PATIENT
  Sex: Female

DRUGS (3)
  1. SEROQUEL [Suspect]
     Indication: ANXIETY
     Route: 048
  2. VENLAFAXINE [Concomitant]
  3. SEROQUEL [Suspect]
     Route: 048

REACTIONS (6)
  - LEFT VENTRICULAR DYSFUNCTION [None]
  - HEART RATE INCREASED [None]
  - OEDEMA [None]
  - PLEURAL EFFUSION [None]
  - FLUID RETENTION [None]
  - OBESITY [None]
